FAERS Safety Report 9954628 (Version 2)
Quarter: 2014Q1

REPORT INFORMATION
  Report Type: Report from Study
  Country: US (occurrence: US)
  Receive Date: 20140304
  Receipt Date: 20140304
  Transmission Date: 20141002
  Serious: No
  Sender: FDA-Public Use
  Company Number: US-ABBVIE-13P-163-1067695-00

PATIENT
  Age: 69 Year
  Sex: Male

DRUGS (9)
  1. HUMIRA [Suspect]
     Indication: COLITIS ULCERATIVE
     Dates: start: 20130313, end: 20130313
  2. HUMIRA [Suspect]
     Dates: start: 20130327, end: 20130327
  3. HUMIRA [Suspect]
  4. LIALDA [Concomitant]
     Indication: COLITIS ULCERATIVE
     Route: 048
  5. ACIPHEX [Concomitant]
     Indication: GASTROOESOPHAGEAL REFLUX DISEASE
     Route: 048
  6. ATIVAN [Concomitant]
     Indication: INSOMNIA
  7. MULTIVITAMIN [Concomitant]
     Indication: PRODUCT USED FOR UNKNOWN INDICATION
     Dosage: WHEN HE REMEMBERS
  8. FLONASE [Concomitant]
     Indication: HYPERSENSITIVITY
  9. ZYRTEC [Concomitant]
     Indication: PRODUCT USED FOR UNKNOWN INDICATION

REACTIONS (12)
  - Nausea [Recovered/Resolved]
  - Nausea [Recovered/Resolved]
  - Injection site pain [Recovered/Resolved]
  - Injection site haemorrhage [Recovered/Resolved]
  - Injection site bruising [Recovered/Resolved]
  - Abdominal pain upper [Unknown]
  - Hot flush [Unknown]
  - Fatigue [Unknown]
  - Dizziness [Unknown]
  - Pruritus [Unknown]
  - Vitreous floaters [Not Recovered/Not Resolved]
  - Photopsia [Not Recovered/Not Resolved]
